FAERS Safety Report 10444808 (Version 2)
Quarter: 2014Q3

REPORT INFORMATION
  Report Type: Spontaneous
  Country: AR (occurrence: AR)
  Receive Date: 20140910
  Receipt Date: 20140910
  Transmission Date: 20150326
  Serious: Yes (Other)
  Sender: FDA-Public Use
  Company Number: AR-PFIZER INC-2014240987

PATIENT
  Age: 51 Year
  Sex: Male

DRUGS (1)
  1. SUTENT [Suspect]
     Active Substance: SUNITINIB MALATE
     Dosage: 37.5 MG, CYCLIC (SCHEME 4 WEEKS ON / 2 WEEKS OFF)
     Dates: start: 20130907, end: 20140815

REACTIONS (2)
  - Spinal disorder [Unknown]
  - Impaired healing [Unknown]

NARRATIVE: CASE EVENT DATE: 20140815
